FAERS Safety Report 5151180-4 (Version None)
Quarter: 2006Q4

REPORT INFORMATION
  Report Type: 
  Country: None (occurrence: None)
  Receive Date: 20061113
  Receipt Date: 20061113
  Transmission Date: 20070319
  Serious: Yes (Other)
  Sender: FDA-Public Use
  Company Number: None

PATIENT
  Age: 37 Year
  Sex: Female
  Weight: 60.782 kg

DRUGS (3)
  1. CHANTIX [Suspect]
     Indication: TOBACCO USER
     Dosage: FIRST DAY OF BID USE
  2. SYNTHROID [Concomitant]
  3. ONE A DAY MULTIVITAMIN [Concomitant]

REACTIONS (3)
  - CRYING [None]
  - DEPRESSED MOOD [None]
  - FEELING ABNORMAL [None]
